FAERS Safety Report 9848397 (Version 2)
Quarter: 2014Q1

REPORT INFORMATION
  Report Type: Spontaneous
  Country: GB (occurrence: GB)
  Receive Date: 20140128
  Receipt Date: 20140206
  Transmission Date: 20141002
  Serious: Yes (Other)
  Sender: FDA-Public Use
  Company Number: GB-JNJFOC-20140111794

PATIENT
  Age: 81 Year
  Sex: Female

DRUGS (16)
  1. XARELTO [Suspect]
     Indication: CEREBROVASCULAR ACCIDENT PROPHYLAXIS
     Route: 048
  2. XARELTO [Suspect]
     Indication: ATRIAL FIBRILLATION
     Route: 048
  3. ALFACALCIDOL [Concomitant]
     Route: 065
  4. ATORVASTATIN [Concomitant]
     Route: 065
  5. BISOPROLOL [Concomitant]
     Route: 065
  6. BUPRENORPHINE [Concomitant]
     Route: 065
  7. CARBINOXAMINE MALEATE [Concomitant]
     Route: 065
  8. LEVOTHYROXINE [Concomitant]
     Route: 065
  9. SERTRALINE [Concomitant]
     Route: 065
  10. CODEINE [Concomitant]
     Route: 065
  11. CYCLIZINE [Concomitant]
     Route: 065
  12. SODIUM BICARBONATE [Concomitant]
     Route: 065
  13. FERROUS FUMARATE [Concomitant]
     Route: 065
  14. FUROSEMIDE [Concomitant]
     Route: 065
  15. DOXAZOSIN [Concomitant]
     Route: 065
  16. ISOSORBIDE MONONITRATE [Concomitant]
     Route: 065

REACTIONS (2)
  - Pulmonary embolism [Recovering/Resolving]
  - Cough [Recovering/Resolving]
